FAERS Safety Report 15196059 (Version 4)
Quarter: 2018Q4

REPORT INFORMATION
  Report Type: Spontaneous
  Country: JP (occurrence: JP)
  Receive Date: 20180725
  Receipt Date: 20181105
  Transmission Date: 20190204
  Serious: Yes (Death, Hospitalization)
  Sender: FDA-Public Use
  Company Number: JP-ALLERGAN-1836484US

PATIENT
  Age: 85 Year
  Sex: Female

DRUGS (13)
  1. YOKUKANSAN [Suspect]
     Active Substance: HERBALS
     Indication: DEMENTIA
     Dosage: 2.5 G, BID
     Route: 048
     Dates: end: 20180629
  2. YOKUKANSAN [Suspect]
     Active Substance: HERBALS
     Indication: LIPIDS ABNORMAL
  3. ALINAMIN [Concomitant]
     Route: 065
  4. REMINYL [Suspect]
     Active Substance: GALANTAMINE
     Indication: DEMENTIA ALZHEIMER^S TYPE
     Dosage: 12 MG, BID
     Route: 048
     Dates: end: 20180704
  5. MONTELUKAST [Concomitant]
     Active Substance: MONTELUKAST SODIUM
     Dosage: UNK
     Route: 065
  6. MEMANTINE HCL - BP [Suspect]
     Active Substance: MEMANTINE
     Indication: LIPIDS ABNORMAL
  7. PAXIL [Suspect]
     Active Substance: PAROXETINE HYDROCHLORIDE
     Indication: LIPIDS ABNORMAL
     Dosage: 50 MG, QD
     Route: 048
  8. REMINYL [Suspect]
     Active Substance: GALANTAMINE
     Indication: LIPIDS ABNORMAL
  9. PAXIL [Suspect]
     Active Substance: PAROXETINE HYDROCHLORIDE
     Indication: DEMENTIA
     Dosage: UNK
     Route: 048
     Dates: end: 20180706
  10. ARICEPT [Concomitant]
     Active Substance: DONEPEZIL HYDROCHLORIDE
     Dosage: UNK
     Route: 065
  11. MEMANTINE HCL - BP [Suspect]
     Active Substance: MEMANTINE
     Indication: DEMENTIA ALZHEIMER^S TYPE
     Dosage: 20 MG, QD
     Route: 048
     Dates: end: 20180718
  12. FENOFIBRATE. [Concomitant]
     Active Substance: FENOFIBRATE
     Route: 065
  13. FAMOTIDINE. [Concomitant]
     Active Substance: FAMOTIDINE
     Route: 065

REACTIONS (2)
  - Interstitial lung disease [Fatal]
  - Off label use [Unknown]

NARRATIVE: CASE EVENT DATE: 20180629
